FAERS Safety Report 17727585 (Version 1)
Quarter: 2020Q2

REPORT INFORMATION
  Report Type: Spontaneous
  Country: US (occurrence: US)
  Receive Date: 20200429
  Receipt Date: 20200429
  Transmission Date: 20200714
  Serious: Yes (Other)
  Sender: FDA-Public Use
  Company Number: None

PATIENT
  Age: 50 Year
  Sex: Female
  Weight: 74.84 kg

DRUGS (5)
  1. BONIVA [Concomitant]
     Active Substance: IBANDRONATE SODIUM
  2. ANAVAR [Concomitant]
     Active Substance: OXANDROLONE
  3. SOLU-CORTEF [Concomitant]
     Active Substance: HYDROCORTISONE SODIUM SUCCINATE
  4. RELOXETINE [Concomitant]
  5. ESTRADIOL 9MG [Suspect]
     Active Substance: ESTRADIOL
     Indication: OSTEOPOROSIS
     Route: 048
     Dates: start: 201309, end: 201711

REACTIONS (1)
  - Breast tenderness [None]

NARRATIVE: CASE EVENT DATE: 201711
